FAERS Safety Report 8919565 (Version 5)
Quarter: 2014Q1

REPORT INFORMATION
  Report Type: Spontaneous
  Country: US (occurrence: US)
  Receive Date: 20121121
  Receipt Date: 20140303
  Transmission Date: 20141002
  Serious: Yes (Hospitalization, Other)
  Sender: FDA-Public Use
  Company Number: US-BIOGENIDEC-2012BI053264

PATIENT
  Sex: Female

DRUGS (2)
  1. AVONEX [Suspect]
     Indication: MULTIPLE SCLEROSIS
     Route: 030
     Dates: start: 2004
  2. AVONEX [Suspect]
     Indication: MULTIPLE SCLEROSIS
     Route: 030
     Dates: start: 20090312, end: 20121113

REACTIONS (9)
  - Lung neoplasm malignant [Recovered/Resolved]
  - Neoplasm malignant [Not Recovered/Not Resolved]
  - Renal stone removal [Not Recovered/Not Resolved]
  - Stent placement [Not Recovered/Not Resolved]
  - Delirium [Not Recovered/Not Resolved]
  - Blindness [Not Recovered/Not Resolved]
  - Deafness [Not Recovered/Not Resolved]
  - Aphasia [Not Recovered/Not Resolved]
  - Hyperphagia [Not Recovered/Not Resolved]
